FAERS Safety Report 24815072 (Version 2)
Quarter: 2025Q1

REPORT INFORMATION
  Report Type: Spontaneous
  Country: US (occurrence: US)
  Receive Date: 20250107
  Receipt Date: 20250115
  Transmission Date: 20250409
  Serious: Yes (Other)
  Sender: PFIZER
  Company Number: US-PFIZER INC-PV202500000415

PATIENT
  Age: 82 Year
  Sex: Female
  Weight: 95 kg

DRUGS (2)
  1. VYNDAMAX [Suspect]
     Active Substance: TAFAMIDIS
     Indication: Cardiac amyloidosis
     Dosage: ONE 61 MG TAFAMIDIS CAPSULE ORALLY ONCE DAILY
     Route: 048
  2. VYNDAMAX [Suspect]
     Active Substance: TAFAMIDIS
     Indication: Amyloidosis

REACTIONS (8)
  - Chronic kidney disease [Unknown]
  - Therapeutic product effect incomplete [Unknown]
  - Bundle branch block left [Unknown]
  - Fat tissue increased [Not Recovered/Not Resolved]
  - Spinal stenosis [Unknown]
  - Dyspnoea exertional [Unknown]
  - Pain in extremity [Unknown]
  - Mobility decreased [Unknown]
